FAERS Safety Report 6594801-1 (Version None)
Quarter: 2010Q1

REPORT INFORMATION
  Report Type: 
  Country: None (occurrence: None)
  Receive Date: 20100222
  Receipt Date: 20100212
  Transmission Date: 20100710
  Serious: Yes (Other)
  Sender: FDA-Public Use
  Company Number: US-JNJFOC-20100201207

PATIENT
  Age: 22 Year
  Sex: Female
  Weight: 81.19 kg

DRUGS (2)
  1. EXTRA STRENGTH TYLENOL [Suspect]
     Indication: MIGRAINE
  2. EXTRA STRENGTH TYLENOL [Suspect]
     Indication: TOOTHACHE

REACTIONS (3)
  - DRUG EXPOSURE DURING PREGNANCY [None]
  - HYPERSENSITIVITY [None]
  - PRODUCT QUALITY ISSUE [None]
